FAERS Safety Report 13039126 (Version 1)
Quarter: 2016Q4

REPORT INFORMATION
  Report Type: Spontaneous
  Country: US (occurrence: US)
  Receive Date: 20161216
  Receipt Date: 20161216
  Transmission Date: 20170207
  Serious: No
  Sender: FDA-Public Use
  Company Number: None

PATIENT
  Age: 73 Year
  Sex: Female
  Weight: 87.75 kg

DRUGS (15)
  1. NEXIUM [Concomitant]
     Active Substance: ESOMEPRAZOLE MAGNESIUM
  2. VITAMIN D3 [Concomitant]
     Active Substance: CHOLECALCIFEROL
  3. MUCINEX [Concomitant]
     Active Substance: GUAIFENESIN
  4. FLONASE [Concomitant]
     Active Substance: FLUTICASONE PROPIONATE
  5. MULTI-VITAMIN [Concomitant]
     Active Substance: .ALPHA.-TOCOPHEROL ACETATE, DL-\ASCORBIC ACID\CYANOCOBALAMIN\FLUORIDE ION\FOLIC ACID\NIACIN\PYRIDOXINE\RIBOFLAVIN\THIAMINE\VITAMIN A\VITAMIN D
  6. MELOXICAM. [Concomitant]
     Active Substance: MELOXICAM
  7. VAGIFEM [Concomitant]
     Active Substance: ESTRADIOL
  8. LOW-DOSE ASPIRIN [Concomitant]
     Active Substance: ASPIRIN
  9. VITAMIN B12 [Concomitant]
     Active Substance: CYANOCOBALAMIN
  10. ESOMEPRAZOLE MAGNESIUM DELAYED R [Suspect]
     Active Substance: ESOMEPRAZOLE MAGNESIUM
     Indication: GASTROOESOPHAGEAL REFLUX DISEASE
     Dosage: ?          QUANTITY:90 CAPSULE(S);?
     Route: 048
     Dates: start: 20161125, end: 20161207
  11. ATORVASTATIN [Concomitant]
     Active Substance: ATORVASTATIN
  12. METOPROLOL SUCCINATE. [Concomitant]
     Active Substance: METOPROLOL SUCCINATE
  13. CALCIUM + MAGNESIUM [Concomitant]
  14. AMIODARONE [Concomitant]
     Active Substance: AMIODARONE
  15. BIOTIN [Concomitant]
     Active Substance: BIOTIN

REACTIONS (6)
  - Drug ineffective [None]
  - Dyspepsia [None]
  - Product substitution issue [None]
  - Abdominal discomfort [None]
  - Eructation [None]
  - Eating disorder [None]

NARRATIVE: CASE EVENT DATE: 20161125
